FAERS Safety Report 15228445 (Version 1)
Quarter: 2018Q3

REPORT INFORMATION
  Report Type: Spontaneous
  Country: US (occurrence: US)
  Receive Date: 20180801
  Receipt Date: 20180801
  Transmission Date: 20181010
  Serious: Yes (Hospitalization)
  Sender: FDA-Public Use
  Company Number: US-DEPOMED, INC.-US-2018DEP001565

PATIENT
  Age: 57 Year
  Sex: Male

DRUGS (1)
  1. GRALISE [Suspect]
     Active Substance: GABAPENTIN
     Indication: PAIN
     Dosage: 1800 MG, QD
     Route: 048
     Dates: start: 20180501, end: 2018

REACTIONS (2)
  - Product used for unknown indication [Unknown]
  - Aspiration [Unknown]

NARRATIVE: CASE EVENT DATE: 2018
